FAERS Safety Report 13710584 (Version 1)
Quarter: 2017Q2

REPORT INFORMATION
  Report Type: Spontaneous
  Country: US (occurrence: US)
  Receive Date: 20170630
  Receipt Date: 20170630
  Transmission Date: 20170830
  Serious: Yes (Disabling)
  Sender: FDA-Public Use
  Company Number: None

PATIENT
  Age: 48 Year
  Sex: Female
  Weight: 76.5 kg

DRUGS (6)
  1. VITAMIN B12 [Concomitant]
     Active Substance: CYANOCOBALAMIN
  2. BUPROPION. [Concomitant]
     Active Substance: BUPROPION
  3. ESCITALOPRAM [Suspect]
     Active Substance: ESCITALOPRAM OXALATE
     Indication: DEPRESSION
     Dosage: ?          OTHER STRENGTH:MG;QUANTITY:1 TABLET(S);?DAILY ORAL
     Route: 048
     Dates: start: 20170628, end: 20170629
  4. IBUPROFEN. [Concomitant]
     Active Substance: IBUPROFEN
  5. ACETOMENOPHEN [Concomitant]
  6. ZINC. [Concomitant]
     Active Substance: ZINC

REACTIONS (4)
  - Tremor [None]
  - Product substitution issue [None]
  - Malaise [None]
  - Disturbance in attention [None]

NARRATIVE: CASE EVENT DATE: 20170630
